FAERS Safety Report 4545060-2 (Version None)
Quarter: 2005Q1

REPORT INFORMATION
  Report Type: 
  Country: None (occurrence: None)
  Receive Date: 20050103
  Receipt Date: 20041217
  Transmission Date: 20050727
  Serious: Yes (Life-Threatening, Hospitalization)
  Sender: FDA-Public Use
  Company Number: 2004196601CH

PATIENT
  Age: 61 Year
  Sex: Female

DRUGS (9)
  1. LUVOX [Suspect]
     Indication: BIPOLAR DISORDER
     Dosage: 800 MG (SINGLE), ORAL
     Route: 048
     Dates: start: 20040102, end: 20040102
  2. TOLTERODINE (TOLTERODINE) [Suspect]
     Indication: ILL-DEFINED DISORDER
     Dosage: 14 MG (SINGLE), ORAL
     Route: 048
     Dates: start: 20040102, end: 20040102
  3. PONSTEL [Suspect]
     Dosage: 1800 MG (SINGLE)
     Dates: start: 20040102, end: 20040102
  4. LITHIUM CARBONATE [Suspect]
     Dosage: 400 MG (SINGLE), ORAL
     Route: 048
     Dates: start: 20040102, end: 20040102
  5. TRAMADOL HCL [Suspect]
     Dosage: 4500 MG (SINGLE), ORAL
     Route: 048
     Dates: start: 20040102, end: 20040102
  6. CLOTIAPINE (CLOTIAPINE) [Concomitant]
     Dosage: 4000 MG (SINGLE), ORAL
     Route: 048
     Dates: start: 20040102, end: 20040102
  7. PROPRANOLOL [Suspect]
     Dosage: 300 MG (SINGLE), ORAL
     Route: 048
     Dates: start: 20040102, end: 20040102
  8. CLORAZEPATE DIPOTASSIUM [Suspect]
     Dosage: 25 MG (SINGLE), ORAL
     Route: 048
     Dates: start: 20040102, end: 20040102
  9. FLURAZEPAM HYDROCHLORIDE (FLURAZEPAM HYDROCHLORIDE) [Suspect]
     Dosage: 1800 MG (SINGLE), ORAL
     Route: 048
     Dates: start: 20040102, end: 20040102

REACTIONS (20)
  - ABDOMINAL DISTENSION [None]
  - ANAEMIA [None]
  - BOWEL SOUNDS ABNORMAL [None]
  - BRADYCARDIA [None]
  - COMA [None]
  - GASTRITIS HAEMORRHAGIC [None]
  - HAEMATEMESIS [None]
  - HAEMODIALYSIS [None]
  - HYPOTENSION [None]
  - HYPOXIA [None]
  - MYOCLONUS [None]
  - OEDEMA PERIPHERAL [None]
  - PETECHIAE [None]
  - PITTING OEDEMA [None]
  - RENAL FAILURE ACUTE [None]
  - SEROTONIN SYNDROME [None]
  - SUICIDE ATTEMPT [None]
  - TACHYCARDIA [None]
  - TACHYPNOEA [None]
  - THROMBOCYTOPENIA [None]
